FAERS Safety Report 10616294 (Version 1)
Quarter: 2014Q4

REPORT INFORMATION
  Report Type: Spontaneous
  Country: US (occurrence: None)
  Receive Date: 20141125
  Receipt Date: 20141125
  Transmission Date: 20150529
  Serious: Yes (Other)
  Sender: FDA-Public Use
  Company Number: None

PATIENT
  Age: 57 Year
  Sex: Female
  Weight: 112 kg

DRUGS (2)
  1. PROLIA [Suspect]
     Active Substance: DENOSUMAB
     Indication: OSTEOPOROSIS
     Dates: start: 20130713
  2. CALCIUM + D [Concomitant]
     Active Substance: CALCIUM\VITAMIN D

REACTIONS (15)
  - Confusional state [None]
  - Urinary retention [None]
  - Middle insomnia [None]
  - Tinnitus [None]
  - Bone pain [None]
  - Pain in extremity [None]
  - Unevaluable event [None]
  - Renal impairment [None]
  - Pain [None]
  - Hypoaesthesia [None]
  - Burning sensation [None]
  - Fibromyalgia [None]
  - Blood urine present [None]
  - Myalgia [None]
  - Fatigue [None]

NARRATIVE: CASE EVENT DATE: 20130713
